FAERS Safety Report 19669063 (Version 1)
Quarter: 2021Q3

REPORT INFORMATION
  Report Type: Report from Study
  Country: MX (occurrence: MX)
  Receive Date: 20210806
  Receipt Date: 20210806
  Transmission Date: 20211014
  Serious: Yes (Other)
  Sender: FDA-Public Use
  Company Number: NVSC2021MX177990

PATIENT
  Sex: Female
  Weight: 53 kg

DRUGS (2)
  1. INSULIN [Concomitant]
     Active Substance: INSULIN NOS
     Indication: BLOOD GLUCOSE
     Dosage: 19 DF, QD (SEVERAL YEAR AGO)
     Route: 065
  2. GALVUS MET [Suspect]
     Active Substance: METFORMIN HYDROCHLORIDE\VILDAGLIPTIN
     Indication: BLOOD GLUCOSE
     Dosage: 1 DF, QD (AROUND 2 YEARS AGO)
     Route: 048

REACTIONS (3)
  - Renal disorder [Recovering/Resolving]
  - Fluid retention [Unknown]
  - Hypertension [Recovering/Resolving]
